FAERS Safety Report 7879860-8 (Version None)
Quarter: 2011Q4

REPORT INFORMATION
  Report Type: 
  Country: None (occurrence: None)
  Receive Date: 20111101
  Receipt Date: 20111024
  Transmission Date: 20120403
  Serious: Yes (Other)
  Sender: FDA-Public Use
  Company Number: TR-ROCHE-1007229

PATIENT
  Age: 42 Year
  Sex: Male

DRUGS (10)
  1. RANITIDINE HCL [Concomitant]
  2. HYDROCHLOROTHIAZIDE [Concomitant]
  3. SIROLIMUS [Suspect]
     Indication: PROPHYLAXIS AGAINST TRANSPLANT REJECTION
  4. TACROLIMUS [Suspect]
     Indication: PROPHYLAXIS AGAINST TRANSPLANT REJECTION
  5. PREDNISOLONE [Suspect]
     Indication: PROPHYLAXIS AGAINST TRANSPLANT REJECTION
     Dosage: 5 MG/EVERY 2 DAYS
  6. VERAPAMIL [Concomitant]
  7. ALLOPURINOL [Concomitant]
  8. ACARBOSE [Concomitant]
  9. MYCOPHENOLATE MOFETIL [Suspect]
     Indication: PROPHYLAXIS AGAINST TRANSPLANT REJECTION
  10. CANDESARTAN CILEXETIL [Concomitant]

REACTIONS (1)
  - PYODERMA GANGRENOSUM [None]
